FAERS Safety Report 22126754 (Version 1)
Quarter: 2023Q1

REPORT INFORMATION
  Report Type: Spontaneous
  Country: GB (occurrence: GB)
  Receive Date: 20230322
  Receipt Date: 20230322
  Transmission Date: 20230417
  Serious: Yes (Other)
  Sender: FDA-Public Use
  Company Number: None

PATIENT
  Age: 59 Year
  Sex: Female

DRUGS (1)
  1. BUPRENORPHINE [Suspect]
     Active Substance: BUPRENORPHINE
     Indication: Arthralgia
     Dosage: 10 MCG
     Route: 062
     Dates: start: 20210112, end: 20210128

REACTIONS (1)
  - Thermal burn [Recovered/Resolved]

NARRATIVE: CASE EVENT DATE: 20210128
